FAERS Safety Report 19783316 (Version 1)
Quarter: 2021Q3

REPORT INFORMATION
  Report Type: Spontaneous
  Country: US (occurrence: US)
  Receive Date: 20210903
  Receipt Date: 20210903
  Transmission Date: 20211014
  Serious: No
  Sender: FDA-Public Use
  Company Number: US-ALLERGAN-2045406US

PATIENT
  Age: 75 Year
  Sex: Male

DRUGS (4)
  1. METFORMIN [Concomitant]
     Active Substance: METFORMIN HYDROCHLORIDE
     Indication: DIABETES MELLITUS
  2. ANDRODERM [Suspect]
     Active Substance: TESTOSTERONE
     Indication: SEXUAL DYSFUNCTION
  3. ANATOL [Concomitant]
     Indication: HYPERTENSION
  4. ANDRODERM [Suspect]
     Active Substance: TESTOSTERONE
     Indication: ASTHENIA
     Dosage: 1 DF, QD
     Route: 062
     Dates: start: 202009, end: 202011

REACTIONS (10)
  - Application site swelling [Recovering/Resolving]
  - Application site pruritus [Recovered/Resolved]
  - Application site burn [Recovering/Resolving]
  - Pruritus [Unknown]
  - Drug ineffective for unapproved indication [Unknown]
  - Off label use [Unknown]
  - Application site rash [Recovering/Resolving]
  - Urticaria [Unknown]
  - Blood glucose increased [Unknown]
  - Rash macular [Recovering/Resolving]

NARRATIVE: CASE EVENT DATE: 202010
